FAERS Safety Report 5826105-6 (Version None)
Quarter: 2008Q3

REPORT INFORMATION
  Report Type: 
  Country: None (occurrence: None)
  Receive Date: 20080729
  Receipt Date: 20080716
  Transmission Date: 20090109
  Serious: Yes (Hospitalization, Other)
  Sender: FDA-Public Use
  Company Number: US-ELI_LILLY_AND_COMPANY-US200807003230

PATIENT
  Age: 35 Year
  Sex: Female

DRUGS (3)
  1. FLUOXETINE HYDROCHLORIDE [Suspect]
     Indication: DEPRESSION
     Dosage: 40 MG, UNK
  2. LAMOTRIGINE [Interacting]
     Indication: BIPOLAR DISORDER
     Dosage: 200 MG, DAILY (1/D)
  3. LAMOTRIGINE [Interacting]
     Dosage: 400 MG, DAILY (1/D)

REACTIONS (5)
  - BIPOLAR DISORDER [None]
  - DELIRIUM [None]
  - DRUG INTERACTION [None]
  - DRUG TOXICITY [None]
  - OVERDOSE [None]
